FAERS Safety Report 10177605 (Version 1)
Quarter: 2014Q2

REPORT INFORMATION
  Report Type: Spontaneous
  Country: US (occurrence: US)
  Receive Date: 20140516
  Receipt Date: 20140516
  Transmission Date: 20141212
  Serious: No
  Sender: FDA-Public Use
  Company Number: US-GILEAD-2014-0102367

PATIENT
  Sex: Female

DRUGS (2)
  1. SOVALDI [Suspect]
     Indication: PRODUCT USED FOR UNKNOWN INDICATION
     Dosage: DOUBLE DOSE
     Route: 065
     Dates: start: 20140512, end: 20140512
  2. SOVALDI [Suspect]
     Dosage: UNK
     Route: 065

REACTIONS (1)
  - Accidental overdose [Recovered/Resolved]
